FAERS Safety Report 8613449-8 (Version None)
Quarter: 2012Q3

REPORT INFORMATION
  Report Type: 
  Country: None (occurrence: None)
  Receive Date: 20120822
  Receipt Date: 20120819
  Transmission Date: 20120928
  Serious: Yes (Other)
  Sender: FDA-Public Use
  Company Number: US-AMGEN-USASP2012032866

PATIENT
  Age: 82 Year
  Sex: Male
  Weight: 80.272 kg

DRUGS (3)
  1. PREDNISONE TAB [Concomitant]
     Dosage: 5 MG, BID
  2. JEVTANA KIT [Concomitant]
     Dosage: 100 MG, UNK
     Dates: start: 20120227
  3. XGEVA [Suspect]
     Indication: METASTASES TO BONE
     Dosage: 120 MG, QMO
     Route: 058
     Dates: start: 20120130, end: 20120503

REACTIONS (1)
  - OSTEONECROSIS OF JAW [None]
